FAERS Safety Report 23925129 (Version 1)
Quarter: 2024Q2

REPORT INFORMATION
  Report Type: Spontaneous
  Country: CN (occurrence: CN)
  Receive Date: 20240531
  Receipt Date: 20240531
  Transmission Date: 20240716
  Serious: Yes (Hospitalization, Other)
  Sender: FDA-Public Use
  Company Number: CN-PFIZER INC-PV202400071462

PATIENT
  Age: 49 Year
  Sex: Male
  Weight: 79 kg

DRUGS (4)
  1. EPIRUBICIN HYDROCHLORIDE [Suspect]
     Active Substance: EPIRUBICIN HYDROCHLORIDE
     Indication: Follicular lymphoma
     Dosage: 90 MG, 1X/DAY
     Route: 041
     Dates: start: 20240506, end: 20240507
  2. CYCLOPHOSPHAMIDE [Concomitant]
     Active Substance: CYCLOPHOSPHAMIDE
     Indication: Follicular lymphoma
     Dosage: 1 G, 1X/DAY
     Route: 041
     Dates: start: 20240506, end: 20240507
  3. VINDESINE SULFATE [Concomitant]
     Active Substance: VINDESINE SULFATE
     Indication: Follicular lymphoma
     Dosage: 4 MG, 1X/DAY
     Route: 041
     Dates: start: 20240506, end: 20240507
  4. PREDNISONE ACETATE [Concomitant]
     Active Substance: PREDNISONE ACETATE
     Indication: Follicular lymphoma
     Dosage: 5 MG, 3X/DAY
     Route: 048
     Dates: start: 20240507, end: 20240511

REACTIONS (3)
  - Myocardial injury [Recovering/Resolving]
  - Acute myocardial infarction [Unknown]
  - Off label use [Unknown]

NARRATIVE: CASE EVENT DATE: 20240501
